FAERS Safety Report 8961293 (Version 1)
Quarter: 2012Q4

REPORT INFORMATION
  Report Type: 
  Country: US (occurrence: US)
  Receive Date: 20121212
  Receipt Date: 20121212
  Transmission Date: 20130627
  Serious: Yes (Death)
  Sender: FDA-Public Use
  Company Number: US-ELI_LILLY_AND_COMPANY-US201212000909

PATIENT

DRUGS (1)
  1. OLANZAPINE [Suspect]

REACTIONS (1)
  - Sudden cardiac death [Fatal]
